FAERS Safety Report 5333305-0 (Version None)
Quarter: 2007Q2

REPORT INFORMATION
  Report Type: 
  Country: None (occurrence: None)
  Receive Date: 20070524
  Receipt Date: 20070511
  Transmission Date: 20071010
  Serious: Yes (Other)
  Sender: FDA-Public Use
  Company Number: FR-AMGEN-US171047

PATIENT
  Sex: Female
  Weight: 98 kg

DRUGS (4)
  1. ENBREL [Suspect]
     Indication: PSORIASIS
     Route: 058
     Dates: start: 20060127, end: 20060214
  2. FLUISEDAL [Concomitant]
     Dosage: 10 ML TOTAL DAILY
     Route: 048
     Dates: start: 20030101
  3. DAFALGAN [Concomitant]
     Route: 054
     Dates: start: 20040101
  4. ATARAX [Concomitant]
     Route: 048
     Dates: start: 20050901

REACTIONS (6)
  - CONDITION AGGRAVATED [None]
  - DRUG INEFFECTIVE [None]
  - LEUKOCYTOCLASTIC VASCULITIS [None]
  - NEUTROPHIL COUNT INCREASED [None]
  - PSORIASIS [None]
  - WHITE BLOOD CELL COUNT INCREASED [None]
